FAERS Safety Report 8150361-5 (Version None)
Quarter: 2012Q1

REPORT INFORMATION
  Report Type: 
  Country: None (occurrence: None)
  Receive Date: 20120220
  Receipt Date: 20120214
  Transmission Date: 20120608
  Serious: Yes (Other)
  Sender: FDA-Public Use
  Company Number: US-PFIZER INC-2012040008

PATIENT
  Sex: Female
  Weight: 64.399 kg

DRUGS (3)
  1. CELEBREX [Suspect]
     Indication: PAIN
     Dosage: 200 MG, 1X/DAY
     Route: 048
     Dates: start: 20120210, end: 20120210
  2. OXYCODONE [Concomitant]
     Indication: ARTHRALGIA
     Dosage: UNK
  3. ALISKIREN/VALSARTAN [Concomitant]
     Indication: HYPERTENSION
     Dosage: UNK

REACTIONS (2)
  - HEARING IMPAIRED [None]
  - ASTHMA [None]
